FAERS Safety Report 4349344-2 (Version None)
Quarter: 2004Q2

REPORT INFORMATION
  Report Type: 
  Country: None (occurrence: None)
  Receive Date: 20040428
  Receipt Date: 20040326
  Transmission Date: 20050107
  Serious: Yes (Other)
  Sender: FDA-Public Use
  Company Number: PHRM2004FR01372

PATIENT
  Age: 25 Year
  Sex: Female

DRUGS (3)
  1. TRILEPTAL [Suspect]
     Indication: SCHIZOPHRENIA
     Dosage: 300 MG, BID
     Route: 048
     Dates: start: 20011011
  2. RISPERDAL [Suspect]
     Indication: SCHIZOPHRENIA
     Dosage: 8 MG DAILY
     Route: 048
     Dates: start: 20011011
  3. TERCIAN [Suspect]
     Indication: ANXIETY
     Dosage: 100 MG DAILY
     Dates: start: 20011011

REACTIONS (2)
  - BLOOD THYROID STIMULATING HORMONE INCREASED [None]
  - HYPOTHYROIDISM [None]
